FAERS Safety Report 7822975-0 (Version None)
Quarter: 2011Q4

REPORT INFORMATION
  Report Type: 
  Country: None (occurrence: None)
  Receive Date: 20111018
  Receipt Date: 20110304
  Transmission Date: 20120403
  Serious: No
  Sender: FDA-Public Use
  Company Number: US-ASTRAZENECA-2011SE12106

PATIENT
  Age: 75 Year
  Sex: Male

DRUGS (3)
  1. PROAIR HFA [Concomitant]
     Dosage: PRN
  2. SYMBICORT [Suspect]
     Indication: CHRONIC OBSTRUCTIVE PULMONARY DISEASE
     Dosage: 80/4.5 MCGS TWO PUFFS TWICE A DAY
     Route: 055
  3. SPIRIVA [Concomitant]

REACTIONS (2)
  - PANIC ATTACK [None]
  - DYSPNOEA [None]
